FAERS Safety Report 17413018 (Version 1)
Quarter: 2020Q1

REPORT INFORMATION
  Report Type: Spontaneous
  Country: US (occurrence: US)
  Receive Date: 20200213
  Receipt Date: 20200213
  Transmission Date: 20200409
  Serious: No
  Sender: FDA-Public Use
  Company Number: US-BAYER-2020-025895

PATIENT
  Sex: Male

DRUGS (2)
  1. CLARITIN [Suspect]
     Active Substance: LORATADINE
  2. NASACORT [Concomitant]
     Active Substance: TRIAMCINOLONE ACETONIDE
     Dosage: 2 DF
     Route: 045
     Dates: start: 202002

REACTIONS (7)
  - Dizziness [Unknown]
  - Malaise [None]
  - Rhinorrhoea [None]
  - Hyperhidrosis [Unknown]
  - Muscle twitching [Unknown]
  - Erythema [Unknown]
  - Drug ineffective [Unknown]
